FAERS Safety Report 17529488 (Version 1)
Quarter: 2020Q1

REPORT INFORMATION
  Report Type: Spontaneous
  Country: US (occurrence: US)
  Receive Date: 20200311
  Receipt Date: 20200311
  Transmission Date: 20200409
  Serious: No
  Sender: FDA-Public Use
  Company Number: US-SA-2020SA059570

PATIENT
  Age: 82 Year
  Sex: Male

DRUGS (3)
  1. LANTUS [Suspect]
     Active Substance: INSULIN GLARGINE
     Indication: TYPE 2 DIABETES MELLITUS
     Dosage: 65 IU, HS
  2. LANTUS [Suspect]
     Active Substance: INSULIN GLARGINE
     Dosage: 45 IU, HS
     Route: 065
  3. FARXIGA [Concomitant]
     Active Substance: DAPAGLIFLOZIN PROPANEDIOL
     Route: 065

REACTIONS (3)
  - Arthropod bite [Unknown]
  - Foreign body in eye [Unknown]
  - Glycosylated haemoglobin increased [Unknown]
